FAERS Safety Report 5643286-8 (Version None)
Quarter: 2008Q1

REPORT INFORMATION
  Report Type: 
  Country: None (occurrence: None)
  Receive Date: 20080226
  Receipt Date: 20080111
  Transmission Date: 20080703
  Serious: Yes (Other)
  Sender: FDA-Public Use
  Company Number: 2008AL000907

PATIENT
  Age: 42 Year
  Sex: Female

DRUGS (3)
  1. PROPRANOLOL HCL [Suspect]
     Dosage: PO
     Route: 048
     Dates: start: 20070801, end: 20071001
  2. BUSPIRONE HYDROCHLORIDE TABLETS, USP 30MG (ATLLC) (BUSPIRONE HYDROCHLO [Suspect]
     Dosage: 5 MG, TID, PO
     Route: 048
     Dates: start: 20070801, end: 20071101
  3. EFFEXOR [Concomitant]

REACTIONS (9)
  - BEDRIDDEN [None]
  - BURNING SENSATION [None]
  - DIZZINESS POSTURAL [None]
  - HEADACHE [None]
  - HYPOTENSION [None]
  - LETHARGY [None]
  - MYDRIASIS [None]
  - NAUSEA [None]
  - VISION BLURRED [None]
